FAERS Safety Report 10232610 (Version 1)
Quarter: 2014Q2

REPORT INFORMATION
  Report Type: Spontaneous
  Country: US (occurrence: None)
  Receive Date: 20140611
  Receipt Date: 20140611
  Transmission Date: 20141212
  Serious: Yes (Life-Threatening, Disabling)
  Sender: FDA-Public Use
  Company Number: None

PATIENT
  Age: 14 Year
  Sex: Male
  Weight: 90.72 kg

DRUGS (1)
  1. CLARAVIS [Suspect]
     Indication: ACNE CYSTIC
     Dosage: 1 PILL  TWICE DAILY TAKEN BY MOUTH
     Route: 048
     Dates: start: 20131011, end: 20131030

REACTIONS (4)
  - Personality change [None]
  - Paranoia [None]
  - Suicidal ideation [None]
  - Depression [None]
